FAERS Safety Report 18952653 (Version 1)
Quarter: 2021Q1

REPORT INFORMATION
  Report Type: Report from Study
  Country: IT (occurrence: IT)
  Receive Date: 20210301
  Receipt Date: 20210301
  Transmission Date: 20210420
  Serious: Yes (Other)
  Sender: FDA-Public Use
  Company Number: IT-ASTRAZENECA-2021A068692

PATIENT
  Age: 73 Year
  Sex: Female
  Weight: 70 kg

DRUGS (9)
  1. PACLITAXEL. [Suspect]
     Active Substance: PACLITAXEL
     Indication: BREAST CANCER
     Dosage: MOST RECENT DOSE OF PACLITAXEL WAS RECEIVED ON 06/MAR/2019.
     Route: 042
  2. NEBIVOLOL. [Concomitant]
     Active Substance: NEBIVOLOL
     Dosage: ONGOING = CHECKED
  3. FULVESTRANT. [Suspect]
     Active Substance: FULVESTRANT
     Indication: BREAST CANCER
     Route: 030
     Dates: start: 20200608
  4. DIBASE [Concomitant]
     Active Substance: CHOLECALCIFEROL
     Dosage: ONGOING = CHECKED
     Dates: start: 20190529
  5. OLPRESS [Concomitant]
     Active Substance: OLMESARTAN MEDOXOMIL
     Dosage: ONGOING = CHECKED
     Dates: start: 20191113
  6. PALBOCICLIB [Suspect]
     Active Substance: PALBOCICLIB
     Indication: BREAST CANCER
     Dosage: OTHER
     Route: 048
  7. PERTUZUMAB. [Suspect]
     Active Substance: PERTUZUMAB
     Indication: BREAST CANCER
     Dosage: MOST RECENT DOSE OF PERTUZUMAB WAS RECEIVED ON 27/MAR/2020.
     Route: 042
  8. EXEMESTANE. [Suspect]
     Active Substance: EXEMESTANE
     Indication: BREAST CANCER
     Dosage: MOST RECENT DOSE OF ANTI?AROMATASES WAS RECEIVED ON 07/JUN/2020.
     Route: 048
  9. TRASTUZUMAB. [Suspect]
     Active Substance: TRASTUZUMAB
     Indication: BREAST CANCER
     Dosage: MOST RECENT DOSE OF TRASTUZUMAB WAS RECEIVED ON 21/JAN/2019.
     Route: 041
     Dates: start: 20181112

REACTIONS (1)
  - Neutropenia [Recovered/Resolved]

NARRATIVE: CASE EVENT DATE: 20201026
